FAERS Safety Report 12484709 (Version 2)
Quarter: 2016Q3

REPORT INFORMATION
  Report Type: Spontaneous
  Country: BR (occurrence: BR)
  Receive Date: 20160621
  Receipt Date: 20160708
  Transmission Date: 20161109
  Serious: Yes (Life-Threatening, Hospitalization, Other)
  Sender: FDA-Public Use
  Company Number: BR-ELI_LILLY_AND_COMPANY-BR201606005306

PATIENT
  Age: 64 Year
  Sex: Female
  Weight: 46 kg

DRUGS (5)
  1. INSULIN HUMAN [Suspect]
     Active Substance: INSULIN HUMAN
     Indication: DIABETES MELLITUS
     Dosage: UNK, UNKNOWN
     Route: 065
  2. HUMALOG [Suspect]
     Active Substance: INSULIN LISPRO
     Indication: TYPE 1 DIABETES MELLITUS
     Dosage: UNK, OTHER
     Route: 058
     Dates: start: 2014
  3. ENALAPRIL [Concomitant]
     Active Substance: ENALAPRIL
     Indication: PRODUCT USED FOR UNKNOWN INDICATION
     Dosage: UNK, UNKNOWN
     Route: 065
  4. LANTUS [Suspect]
     Active Substance: INSULIN GLARGINE
     Indication: DIABETES MELLITUS
     Dosage: UNK, UNKNOWN
     Route: 065
  5. SINVASTATINA [Concomitant]
     Active Substance: SIMVASTATIN
     Indication: PRODUCT USED FOR UNKNOWN INDICATION
     Dosage: UNK, UNKNOWN
     Route: 065

REACTIONS (17)
  - Visual acuity reduced [Not Recovered/Not Resolved]
  - Psoriatic arthropathy [Recovering/Resolving]
  - Blood glucose increased [Unknown]
  - Injury associated with device [Unknown]
  - Nephrolithiasis [Unknown]
  - Crying [Unknown]
  - Blood glucose increased [Unknown]
  - Injection site swelling [Unknown]
  - Gait disturbance [Unknown]
  - Injection site pain [Unknown]
  - Cataract [Unknown]
  - Diabetic retinopathy [Not Recovered/Not Resolved]
  - Upper limb fracture [Recovering/Resolving]
  - Fall [Unknown]
  - Hypoglycaemic coma [Unknown]
  - Hypoglycaemia [Unknown]
  - Osteoporosis [Unknown]

NARRATIVE: CASE EVENT DATE: 201508
